FAERS Safety Report 4279229-1 (Version None)
Quarter: 2004Q1

REPORT INFORMATION
  Report Type: 
  Country: None (occurrence: None)
  Receive Date: 20040122
  Receipt Date: 20040112
  Transmission Date: 20041129
  Serious: Yes (Hospitalization)
  Sender: FDA-Public Use
  Company Number: 2004194583FR

PATIENT
  Age: 46 Year
  Sex: Female

DRUGS (3)
  1. FRAGMIN [Suspect]
     Indication: VARICOSE VEIN
     Dosage: 1 DF, DAILY, SUBCUTANEOUS
     Route: 058
     Dates: start: 19980101
  2. TOPALGIC ^HOUDE^ (TRAMODOL HYDROCHLORIDE) [Concomitant]
  3. PRO-DAFALGAN (PROPACETAMOL HYDROCHLORIDE) [Concomitant]

REACTIONS (7)
  - BURNING SENSATION [None]
  - DRUG INTOLERANCE [None]
  - OEDEMA PERIPHERAL [None]
  - PALMAR ERYTHEMA [None]
  - RASH VESICULAR [None]
  - SKIN DESQUAMATION [None]
  - URTICARIA [None]
